FAERS Safety Report 20320061 (Version 6)
Quarter: 2022Q4

REPORT INFORMATION
  Report Type: Report from Study
  Country: US (occurrence: US)
  Receive Date: 20220111
  Receipt Date: 20221130
  Transmission Date: 20230113
  Serious: Yes (Other)
  Sender: FDA-Public Use
  Company Number: US-TAKEDA-2021TUS048272

PATIENT
  Age: 77 Year
  Sex: Female
  Weight: 48.98 kg

DRUGS (13)
  1. HUMAN IMMUNOGLOBULIN G [Suspect]
     Active Substance: HUMAN IMMUNOGLOBULIN G
     Indication: Immunodeficiency common variable
     Dosage: 13 GRAM, Q2WEEKS
     Route: 058
     Dates: start: 20210804
  2. DIPHENHYDRAMINE [Concomitant]
     Active Substance: DIPHENHYDRAMINE
  3. VITAMIN D3 [Concomitant]
     Active Substance: CHOLECALCIFEROL
  4. EPINEPHRINE [Concomitant]
     Active Substance: EPINEPHRINE
  5. MAGNESIUM [Concomitant]
     Active Substance: MAGNESIUM
  6. ACETAMINOPHEN [Concomitant]
     Active Substance: ACETAMINOPHEN
  7. ALBUTEROL SULFATE\IPRATROPIUM BROMIDE [Concomitant]
     Active Substance: ALBUTEROL SULFATE\IPRATROPIUM BROMIDE
  8. ALBUTEROL SULFATE [Concomitant]
     Active Substance: ALBUTEROL SULFATE
  9. VITAMIN C [Concomitant]
     Active Substance: ASCORBIC ACID
  10. PROTINEX [Concomitant]
  11. ADVAIR HFA [Concomitant]
     Active Substance: FLUTICASONE PROPIONATE\SALMETEROL XINAFOATE
  12. PAXIL [Concomitant]
     Active Substance: PAROXETINE HYDROCHLORIDE
  13. Lmx [Concomitant]

REACTIONS (12)
  - Pneumonia pseudomonal [Unknown]
  - Seasonal allergy [Unknown]
  - Dizziness [Recovered/Resolved]
  - Nausea [Recovered/Resolved]
  - Dyspnoea [Recovered/Resolved]
  - Somnolence [Recovered/Resolved]
  - Fatigue [Recovered/Resolved]
  - Injection site mass [Unknown]
  - Headache [Unknown]
  - Pain [Unknown]
  - Chills [Unknown]
  - Urinary tract infection [Unknown]

NARRATIVE: CASE EVENT DATE: 20220801
